FAERS Safety Report 24615266 (Version 1)
Quarter: 2024Q4

REPORT INFORMATION
  Report Type: Spontaneous
  Country: US (occurrence: US)
  Receive Date: 20241113
  Receipt Date: 20241113
  Transmission Date: 20250115
  Serious: No
  Sender: SANOFI AVENTIS
  Company Number: US-SA-2024SA325886

PATIENT
  Age: 68 Year
  Sex: Female

DRUGS (5)
  1. DUPIXENT [Suspect]
     Active Substance: DUPILUMAB
     Indication: Pulmonary fibrosis
     Dosage: 300 MG, QOW
     Route: 058
     Dates: start: 20241008
  2. ALBUTEROL SULFATE [Concomitant]
     Active Substance: ALBUTEROL SULFATE
  3. ALENDRONATE [Concomitant]
     Active Substance: ALENDRONATE SODIUM
  4. BREZTRI [Concomitant]
     Active Substance: BUDESONIDE\FORMOTEROL\GLYCOPYRROLATE
  5. MONTELUKAST [Concomitant]
     Active Substance: MONTELUKAST

REACTIONS (11)
  - Fatigue [Not Recovered/Not Resolved]
  - Headache [Not Recovered/Not Resolved]
  - Productive cough [Not Recovered/Not Resolved]
  - Pain [Not Recovered/Not Resolved]
  - Decreased appetite [Not Recovered/Not Resolved]
  - Thirst [Recovered/Resolved]
  - Loss of personal independence in daily activities [Not Recovered/Not Resolved]
  - Injection site pain [Not Recovered/Not Resolved]
  - Nasopharyngitis [Not Recovered/Not Resolved]
  - Insomnia [Not Recovered/Not Resolved]
  - Product use in unapproved indication [Unknown]

NARRATIVE: CASE EVENT DATE: 20241001
